FAERS Safety Report 19159671 (Version 1)
Quarter: 2021Q2

REPORT INFORMATION
  Report Type: Spontaneous
  Country: GB (occurrence: GB)
  Receive Date: 20210420
  Receipt Date: 20210420
  Transmission Date: 20210717
  Serious: Yes (Disabling, Other)
  Sender: FDA-Public Use
  Company Number: GB-PFIZER INC-2021386721

PATIENT
  Age: 41 Year
  Sex: Female

DRUGS (1)
  1. DEPO?PROVERA [Suspect]
     Active Substance: MEDROXYPROGESTERONE ACETATE
     Indication: CHEMICAL CONTRACEPTION
     Dosage: 2 MG
     Route: 030
     Dates: start: 20190213, end: 20190813

REACTIONS (37)
  - Abdominal pain upper [Recovered/Resolved]
  - Depression [Recovering/Resolving]
  - Suppressed lactation [Not Recovered/Not Resolved]
  - Anorgasmia [Not Recovered/Not Resolved]
  - Breast pain [Recovering/Resolving]
  - Alopecia [Recovering/Resolving]
  - Anhedonia [Recovered/Resolved]
  - Fluid retention [Recovering/Resolving]
  - Pelvic pain [Not Recovered/Not Resolved]
  - Vaginal odour [Recovered/Resolved]
  - Paraesthesia [Recovered/Resolved]
  - Aphasia [Recovering/Resolving]
  - Dizziness postural [Recovered/Resolved]
  - Insomnia [Not Recovered/Not Resolved]
  - Hot flush [Recovered/Resolved]
  - Panic attack [Not Recovered/Not Resolved]
  - Weight increased [Recovered/Resolved]
  - Dizziness [Recovering/Resolving]
  - Tachycardia [Not Recovered/Not Resolved]
  - Loss of libido [Not Recovered/Not Resolved]
  - Menstruation irregular [Not Recovered/Not Resolved]
  - Menometrorrhagia [Not Recovered/Not Resolved]
  - Acne [Not Recovered/Not Resolved]
  - Arthralgia [Recovered/Resolved]
  - Visual impairment [Recovering/Resolving]
  - Dry skin [Recovering/Resolving]
  - Skin fissures [Not Recovered/Not Resolved]
  - Abdominal distension [Recovered/Resolved]
  - Migraine [Not Recovered/Not Resolved]
  - Dysmenorrhoea [Not Recovered/Not Resolved]
  - Back pain [Recovering/Resolving]
  - Fatigue [Not Recovered/Not Resolved]
  - Anxiety [Recovering/Resolving]
  - Urticaria [Recovered/Resolved]
  - Irritability [Recovering/Resolving]
  - Vulvovaginal dryness [Recovered/Resolved]
  - Hepatic pain [Recovering/Resolving]

NARRATIVE: CASE EVENT DATE: 20190220
